FAERS Safety Report 5499766-1 (Version None)
Quarter: 2007Q4

REPORT INFORMATION
  Report Type: 
  Country: None (occurrence: None)
  Receive Date: 20071026
  Receipt Date: 20071015
  Transmission Date: 20080405
  Serious: Yes (Other)
  Sender: FDA-Public Use
  Company Number: US-PFIZER INC-2007047709

PATIENT
  Sex: Female

DRUGS (2)
  1. BEXTRA [Suspect]
     Route: 048
     Dates: start: 20000131, end: 20031130
  2. CELEBREX [Suspect]

REACTIONS (3)
  - CEREBROVASCULAR ACCIDENT [None]
  - CHEST PAIN [None]
  - DEEP VEIN THROMBOSIS [None]
